FAERS Safety Report 10907605 (Version 1)
Quarter: 2015Q1

REPORT INFORMATION
  Report Type: Spontaneous
  Country: None (occurrence: US)
  Receive Date: 20150312
  Receipt Date: 20150312
  Transmission Date: 20150721
  Serious: Yes (Other)
  Sender: FDA-Public Use
  Company Number: US-MERZ NORTH AMERICA, INC.-15MRZ-00107

PATIENT
  Age: 3 Year
  Sex: Female

DRUGS (9)
  1. LANSOPRAZOLE. [Concomitant]
     Active Substance: LANSOPRAZOLE
  2. CLARITIN [Concomitant]
     Active Substance: LORATADINE
  3. DIAZEPAM. [Concomitant]
     Active Substance: DIAZEPAM
  4. BACLOFEN. [Concomitant]
     Active Substance: BACLOFEN
  5. FLONASE [Concomitant]
     Active Substance: FLUTICASONE PROPIONATE
  6. KEPPRA [Concomitant]
     Active Substance: LEVETIRACETAM
  7. CUVPOSA [Suspect]
     Active Substance: GLYCOPYRROLATE
     Indication: METACHROMATIC LEUKODYSTROPHY
  8. ZONISAMIDE. [Concomitant]
     Active Substance: ZONISAMIDE
  9. GABAPENTIN. [Concomitant]
     Active Substance: GABAPENTIN

REACTIONS (9)
  - Muscle spasms [None]
  - Pain [None]
  - Vomiting [None]
  - Diarrhoea [None]
  - Pyrexia [None]
  - Seizure [None]
  - Haematemesis [None]
  - Chromaturia [None]
  - Pancreatitis [None]
